FAERS Safety Report 16753482 (Version 3)
Quarter: 2019Q4

REPORT INFORMATION
  Report Type: Spontaneous
  Country: US (occurrence: US)
  Receive Date: 20190829
  Receipt Date: 20191118
  Transmission Date: 20200122
  Serious: No
  Sender: FDA-Public Use
  Company Number: US-SHIRE-US201928182

PATIENT
  Sex: Female

DRUGS (3)
  1. TAKHZYRO [Suspect]
     Active Substance: LANADELUMAB-FLYO
     Indication: PRODUCT USED FOR UNKNOWN INDICATION
     Dosage: 300 MILLIGRAM, 1X/2WKS
     Route: 058
     Dates: start: 20190717
  2. FIRAZYR [Suspect]
     Active Substance: ICATIBANT ACETATE
     Indication: PRODUCT USED FOR UNKNOWN INDICATION
     Dosage: 3ML./30MG, AS REQ^D
     Route: 058
     Dates: start: 20170306
  3. CINRYZE [Suspect]
     Active Substance: HUMAN C1-ESTERASE INHIBITOR
     Indication: PRODUCT USED FOR UNKNOWN INDICATION
     Dosage: 1500 INTERNATIONAL UNIT, OTHER, EVERY 3 DAYS
     Route: 042
     Dates: start: 20170424

REACTIONS (5)
  - Feeling jittery [Not Recovered/Not Resolved]
  - Stress [Recovered/Resolved]
  - Prescribed overdose [Unknown]
  - Dyspnoea [Not Recovered/Not Resolved]
  - Hereditary angioedema [Not Recovered/Not Resolved]
